FAERS Safety Report 10283884 (Version 1)
Quarter: 2014Q3

REPORT INFORMATION
  Report Type: Spontaneous
  Country: NL (occurrence: NL)
  Receive Date: 20140708
  Receipt Date: 20140708
  Transmission Date: 20150326
  Serious: Yes (Other)
  Sender: FDA-Public Use
  Company Number: NL-TEVA-492400ISR

PATIENT
  Age: 53 Year
  Sex: Female
  Weight: 57 kg

DRUGS (7)
  1. PANTOTHENIC ACID [Suspect]
     Active Substance: PANTOTHENIC ACID
     Indication: PROPHYLAXIS
     Dosage: ONCE DAILY ONE PIECE
     Route: 048
     Dates: start: 20090901, end: 20140107
  2. ASCORBIC ACID. [Suspect]
     Active Substance: ASCORBIC ACID
     Indication: PROPHYLAXIS
     Dosage: ONCE DAILY ONE PIECE
     Route: 048
     Dates: start: 20090901, end: 20140107
  3. RIBOFLAVINE [Suspect]
     Active Substance: RIBOFLAVIN
     Indication: PROPHYLAXIS
     Dosage: ONCE DAILY ONE PIECE
     Route: 048
     Dates: start: 20090901, end: 20140107
  4. FOLIC ACID. [Suspect]
     Active Substance: FOLIC ACID
     Indication: PROPHYLAXIS
     Dosage: ONCE DAILY ONE PIECE
     Route: 048
     Dates: start: 20090901, end: 20140107
  5. PYRIDOXINE HYDROCHLORIDE. [Suspect]
     Active Substance: PYRIDOXINE HYDROCHLORIDE
     Indication: PROPHYLAXIS
     Dosage: ONCE DAILY ONE PIECE
     Route: 048
     Dates: start: 20090901, end: 20140107
  6. NIACINE TABLET [Suspect]
     Active Substance: NIACIN
     Indication: PROPHYLAXIS
     Dosage: ONCE DAILY ONE PIECE
     Route: 048
     Dates: start: 20090901, end: 20140107
  7. THIAMINE HYDROCHLORIDE. [Suspect]
     Active Substance: THIAMINE HYDROCHLORIDE
     Indication: PROPHYLAXIS
     Dosage: ONCE DAILY ONE PIECE
     Route: 048
     Dates: start: 20090901, end: 20140107

REACTIONS (1)
  - Polyneuropathy [Not Recovered/Not Resolved]

NARRATIVE: CASE EVENT DATE: 20101210
